FAERS Safety Report 8990547 (Version 1)
Quarter: 2012Q4

REPORT INFORMATION
  Report Type: Report from Study
  Country: CA (occurrence: CA)
  Receive Date: 20121228
  Receipt Date: 20121228
  Transmission Date: 20130627
  Serious: Yes (Other)
  Sender: FDA-Public Use
  Company Number: CA-ROCHE-1172416

PATIENT
  Age: 60 Year
  Sex: Female
  Weight: 55.06 kg

DRUGS (3)
  1. OMALIZUMAB [Suspect]
     Indication: ASTHMA
     Dosage: 300 mg, 1/Month
     Route: 058
     Dates: start: 20070130, end: 20090114
  2. OMALIZUMAB [Suspect]
     Dosage: 300 mg, 1/Month
     Route: 058
     Dates: start: 20091110
  3. OMALIZUMAB [Suspect]
     Dosage: 300 mg, 1/Month
     Route: 058
     Dates: start: 20100407

REACTIONS (7)
  - Asthma [Recovering/Resolving]
  - Knee arthroplasty [Unknown]
  - Respiratory tract infection [Unknown]
  - Blood pressure diastolic decreased [Unknown]
  - Drug ineffective [Unknown]
  - Lower respiratory tract infection [Unknown]
  - Upper respiratory tract infection [Recovering/Resolving]
